FAERS Safety Report 20016014 (Version 1)
Quarter: 2021Q4

REPORT INFORMATION
  Report Type: Spontaneous
  Country: US (occurrence: None)
  Receive Date: 20211102
  Receipt Date: 20211102
  Transmission Date: 20220303
  Serious: Yes (Other)
  Sender: FDA-Public Use
  Company Number: None

PATIENT
  Age: 84 Year
  Sex: Male

DRUGS (1)
  1. BAMLANIVIMAB\ETESEVIMAB [Suspect]
     Active Substance: BAMLANIVIMAB\ETESEVIMAB
     Indication: COVID-19
     Dosage: FREQUENCY : ONCE;?
     Route: 041
     Dates: start: 20211029, end: 20211029

REACTIONS (4)
  - Infusion related reaction [None]
  - Chest pain [None]
  - Dyspnoea [None]
  - Flank pain [None]

NARRATIVE: CASE EVENT DATE: 20211029
